FAERS Safety Report 20380921 (Version 1)
Quarter: 2022Q1

REPORT INFORMATION
  Report Type: Other
  Country: US (occurrence: None)
  Receive Date: 20220127
  Receipt Date: 20220127
  Transmission Date: 20220423
  Serious: Yes (Other)
  Sender: FDA-Public Use
  Company Number: US-ROCHE-3002736

PATIENT
  Sex: Female

DRUGS (1)
  1. OCREVUS [Suspect]
     Active Substance: OCRELIZUMAB
     Indication: Multiple sclerosis
     Dosage: 300 MG IV ON DAY 1 AND DAY 15
     Route: 042

REACTIONS (5)
  - Urinary tract infection [Unknown]
  - Multiple sclerosis relapse [Unknown]
  - COVID-19 [Recovered/Resolved]
  - Atonic urinary bladder [Unknown]
  - Nervousness [Unknown]
